FAERS Safety Report 8185320-X (Version None)
Quarter: 2012Q1

REPORT INFORMATION
  Report Type: 
  Country: None (occurrence: None)
  Receive Date: 20120305
  Receipt Date: 20120223
  Transmission Date: 20120608
  Serious: Yes (Hospitalization)
  Sender: FDA-Public Use
  Company Number: FR-EISAI INC-E3810-05336-SPO-FR

PATIENT
  Sex: Female

DRUGS (11)
  1. HELICIDINE [Suspect]
     Indication: ILL-DEFINED DISORDER
     Route: 048
     Dates: start: 20111205
  2. TIORFAN [Suspect]
     Indication: ILL-DEFINED DISORDER
     Route: 048
     Dates: start: 20111208
  3. MOLSIDOMINE [Concomitant]
  4. ISKEDYL [Concomitant]
     Dates: start: 20111213
  5. AMOXICILLIN [Suspect]
     Indication: ILL-DEFINED DISORDER
     Route: 048
     Dates: start: 20111205
  6. CLOPIDOGREL [Concomitant]
  7. BECLOMETHASONE DIPROPIONATE [Suspect]
     Indication: ASPIRATION
     Route: 048
     Dates: start: 20111205
  8. SOTALOL HCL [Concomitant]
  9. ALPRAZOLAM [Concomitant]
  10. RABEPRAZOLE SODIUM [Suspect]
     Indication: ILL-DEFINED DISORDER
     Route: 048
     Dates: end: 20111214
  11. ROPINIROLE HYDROCHLORIDE [Concomitant]

REACTIONS (3)
  - HYPONATRAEMIA [None]
  - OEDEMA PERIPHERAL [None]
  - ABNORMAL BEHAVIOUR [None]
